FAERS Safety Report 6038342-9 (Version None)
Quarter: 2009Q1

REPORT INFORMATION
  Report Type: 
  Country: None (occurrence: None)
  Receive Date: 20090112
  Receipt Date: 20090112
  Transmission Date: 20090719
  Serious: Yes (Other)
  Sender: FDA-Public Use
  Company Number: None

PATIENT
  Age: 12 Month
  Sex: Male
  Weight: 10 kg

DRUGS (1)
  1. THERAFLU FLOWING VAPOURS FAN REFILL PAD (NCH)(UNKNOWN) UNKNOWN [Suspect]
     Dosage: INHALATION
     Route: 055
     Dates: start: 20081231, end: 20081231

REACTIONS (6)
  - EYELID OEDEMA [None]
  - LIP SWELLING [None]
  - LOCAL SWELLING [None]
  - RASH [None]
  - SWELLING [None]
  - SWELLING FACE [None]
